FAERS Safety Report 7818023-9 (Version None)
Quarter: 2011Q4

REPORT INFORMATION
  Report Type: 
  Country: None (occurrence: None)
  Receive Date: 20111017
  Receipt Date: 20111003
  Transmission Date: 20120403
  Serious: Yes (Other)
  Sender: FDA-Public Use
  Company Number: GB-MYLANLABS-2011S1018868

PATIENT
  Age: 66 Year
  Sex: Female
  Weight: 54 kg

DRUGS (4)
  1. NIZATIDINE [Suspect]
     Route: 048
     Dates: start: 20110908, end: 20110909
  2. AMLODIPINE [Suspect]
     Indication: BLOOD PRESSURE
  3. ACETAMINOPHEN [Concomitant]
     Indication: PRODUCT USED FOR UNKNOWN INDICATION
     Route: 048
  4. NIZATIDINE [Suspect]
     Indication: GASTRITIS
     Route: 048
     Dates: start: 20110817, end: 20110827

REACTIONS (4)
  - ARRHYTHMIA [None]
  - DYSPNOEA [None]
  - PALPITATIONS [None]
  - FATIGUE [None]
